FAERS Safety Report 5014840-1 (Version None)
Quarter: 2006Q2

REPORT INFORMATION
  Report Type: 
  Country: None (occurrence: None)
  Receive Date: 20060412
  Receipt Date: 20050506
  Transmission Date: 20061013
  Serious: Yes (Hospitalization)
  Sender: FDA-Public Use
  Company Number: 2005-BP-00134BP

PATIENT
  Sex: Female

DRUGS (1)
  1. MOBIC [Suspect]
     Dosage: 7.5 MG (7.5 MG, 1 IN 1 D), PO
     Route: 048
     Dates: start: 20041215

REACTIONS (2)
  - HEPATITIS [None]
  - LIVER FUNCTION TEST ABNORMAL [None]
